FAERS Safety Report 10955807 (Version 1)
Quarter: 2015Q1

REPORT INFORMATION
  Report Type: Spontaneous
  Country: US (occurrence: None)
  Receive Date: 20150226
  Receipt Date: 20150226
  Transmission Date: 20150721
  Serious: Yes (Other)
  Sender: FDA-Public Use
  Company Number: TAP2008Q00711

PATIENT
  Age: 66 Year
  Sex: Female
  Weight: 97.2 kg

DRUGS (4)
  1. PREVACID [Suspect]
     Active Substance: LANSOPRAZOLE
     Indication: GASTROOESOPHAGEAL REFLUX DISEASE
     Route: 048
     Dates: start: 1998
  2. CRESTOR [Concomitant]
     Active Substance: ROSUVASTATIN CALCIUM
  3. ATENOLOL. [Concomitant]
     Active Substance: ATENOLOL
  4. ATACAND HCT (HYDROCHLOROTHIAZIDE, CANDESARTAN CILEXETIL) [Concomitant]

REACTIONS (2)
  - Gastric polyps [None]
  - Condition aggravated [None]

NARRATIVE: CASE EVENT DATE: 20080403
